FAERS Safety Report 7618864-7 (Version None)
Quarter: 2011Q3

REPORT INFORMATION
  Report Type: 
  Country: None (occurrence: None)
  Receive Date: 20110718
  Receipt Date: 20110707
  Transmission Date: 20111222
  Serious: Yes (Life-Threatening)
  Sender: FDA-Public Use
  Company Number: JP-BAXTER-2011BH019859

PATIENT
  Age: 44 Year
  Sex: Female

DRUGS (3)
  1. PACLITAXEL [Suspect]
     Indication: CERVIX CARCINOMA RECURRENT
     Route: 042
     Dates: start: 20110601, end: 20110601
  2. MESNA [Suspect]
     Indication: CERVIX CARCINOMA RECURRENT
     Route: 042
     Dates: start: 20110601, end: 20110602
  3. IFOSFAMIDE [Suspect]
     Indication: CERVIX CARCINOMA RECURRENT
     Route: 042
     Dates: start: 20110601, end: 20110602

REACTIONS (1)
  - INTERSTITIAL LUNG DISEASE [None]
